FAERS Safety Report 25952409 (Version 3)
Quarter: 2025Q4

REPORT INFORMATION
  Report Type: Spontaneous
  Country: EU (occurrence: EU)
  Receive Date: 20251023
  Receipt Date: 20251113
  Transmission Date: 20260118
  Serious: Yes (Death, Hospitalization, Other)
  Sender: AUROBINDO
  Company Number: EU-JNJFOC-20250947051

PATIENT
  Sex: Male

DRUGS (6)
  1. CARBOPLATIN [Suspect]
     Active Substance: CARBOPLATIN
     Indication: Non-small cell lung cancer
     Dosage: 229 MILLIGRAM
     Route: 065
     Dates: start: 20250924
  2. CARBOPLATIN [Suspect]
     Active Substance: CARBOPLATIN
     Dosage: DATE OF LAST DOSE BEFORE THE EVENT:24-SEP-2025 LAST DOSE BEFORE THE EVENT (MG): 229 MG
     Route: 065
  3. PEMETREXED [Suspect]
     Active Substance: PEMETREXED
     Indication: Non-small cell lung cancer
     Dosage: 520 MILLIGRAM
     Route: 065
     Dates: start: 20250924
  4. PEMETREXED [Suspect]
     Active Substance: PEMETREXED
     Dosage: DATE OF LAST DOSE BEFORE THE EVENT:24-SEP-2025 LAST DOSE BEFORE THE EVENT (MG): 520 MG
     Route: 065
  5. AMIVANTAMAB [Suspect]
     Active Substance: AMIVANTAMAB
     Indication: Non-small cell lung cancer
     Dosage: DATE OF LAST DOSE BEFORE THE EVENT:23-SEP-2025 LAST DOSE BEFORE THE EVENT (MG): 1050 MG
     Route: 065
  6. AMIVANTAMAB [Suspect]
     Active Substance: AMIVANTAMAB
     Dosage: 1400 MILLIGRAM
     Route: 065
     Dates: start: 20250922

REACTIONS (3)
  - Non-small cell lung cancer [Fatal]
  - General physical health deterioration [Fatal]
  - Constipation [Recovered/Resolved]

NARRATIVE: CASE EVENT DATE: 20250926
